FAERS Safety Report 4375900-1 (Version None)
Quarter: 2004Q2

REPORT INFORMATION
  Report Type: 
  Country: None (occurrence: None)
  Receive Date: 20040609
  Receipt Date: 20040609
  Transmission Date: 20050107
  Serious: Yes (Hospitalization)
  Sender: FDA-Public Use
  Company Number: None

PATIENT
  Age: 62 Year
  Sex: Female

DRUGS (12)
  1. SOTALOL HCL [Suspect]
     Indication: ATRIAL FLUTTER
     Dosage: 120 MG PO Q12H
     Dates: start: 20040414, end: 20040415
  2. ASPIRIN [Concomitant]
  3. CEFAZOLIN [Concomitant]
  4. FEXOFENADINE HCL [Concomitant]
  5. FUROSEMIDE [Concomitant]
  6. MONTELUKAST [Concomitant]
  7. RANITIDINE [Concomitant]
  8. VANCOMYCIN [Concomitant]
  9. FLUTICASONE PROPIONATE [Concomitant]
  10. SALMETEROL [Concomitant]
  11. ATORVASTATIN CALCIUM [Concomitant]
  12. POTASSIUM [Concomitant]

REACTIONS (5)
  - BLOOD PRESSURE DIASTOLIC DECREASED [None]
  - CARDIO-RESPIRATORY ARREST [None]
  - RESPIRATORY RATE INCREASED [None]
  - TORSADE DE POINTES [None]
  - VENTRICULAR TACHYCARDIA [None]
